FAERS Safety Report 5240148-5 (Version None)
Quarter: 2007Q1

REPORT INFORMATION
  Report Type: 
  Country: None (occurrence: None)
  Receive Date: 20070216
  Receipt Date: 20070208
  Transmission Date: 20070707
  Serious: Yes (Other)
  Sender: FDA-Public Use
  Company Number: US-PFIZER INC-2007011107

PATIENT
  Sex: Female
  Weight: 48.1 kg

DRUGS (2)
  1. DETROL LA [Suspect]
     Indication: HYPERTONIC BLADDER
  2. NAPROXEN [Concomitant]

REACTIONS (1)
  - COELIAC DISEASE [None]
